FAERS Safety Report 8798556 (Version 1)
Quarter: 2012Q4

REPORT INFORMATION
  Report Type: 
  Country: CA (occurrence: CA)
  Receive Date: 20120920
  Receipt Date: 20120920
  Transmission Date: 20130627
  Serious: Yes (Other)
  Sender: FDA-Public Use
  Company Number: CA-MERCK-1209CAN007802

PATIENT
  Age: 69 Year
  Sex: Female
  Weight: 43 kg

DRUGS (7)
  1. SAPHRIS [Suspect]
     Indication: BIPOLAR DISORDER
     Dosage: 5 mg, qd
     Route: 060
     Dates: start: 20120712, end: 20120816
  2. CELEXA [Concomitant]
     Indication: BIPOLAR DISORDER
     Dosage: 20 mg, qd
     Route: 048
  3. EPIVAL [Concomitant]
     Indication: BIPOLAR DISORDER
     Dosage: 125 mg, bid
     Route: 048
  4. ATACAND PLUS [Concomitant]
     Indication: BLOOD PRESSURE
     Dosage: 32 mg, qd
     Route: 048
  5. SYNTHROID [Concomitant]
     Indication: THYROID DISORDER
     Dosage: 0.05 mg, qd
     Route: 048
  6. CALCIUM (UNSPECIFIED) [Concomitant]
     Indication: ROUTINE HEALTH MAINTENANCE
     Dosage: 250 mg, qd
     Route: 048
  7. VITAMIN D (UNSPECIFIED) [Concomitant]
     Indication: ROUTINE HEALTH MAINTENANCE
     Dosage: 1000 mg, qd
     Route: 048

REACTIONS (4)
  - Palpitations [Recovered/Resolved with Sequelae]
  - Hypotension [Recovering/Resolving]
  - Disturbance in attention [Recovering/Resolving]
  - Underdose [Unknown]
